FAERS Safety Report 4426228-2 (Version None)
Quarter: 2004Q3

REPORT INFORMATION
  Report Type: 
  Country: None (occurrence: None)
  Receive Date: 20040811
  Receipt Date: 20040802
  Transmission Date: 20050211
  Serious: Yes (Other)
  Sender: FDA-Public Use
  Company Number: A-CH2004-06536

PATIENT
  Age: 64 Year
  Sex: Female
  Weight: 69 kg

DRUGS (3)
  1. TRACLEER [Suspect]
     Indication: PULMONARY HYPERTENSION
     Dosage: 62.5 MG, BID, ORAL; SEE IMAGE
     Route: 048
     Dates: start: 20040202
  2. PREDNISONE TAB [Concomitant]
  3. PREVISCAN (FLUINDIONE) [Concomitant]

REACTIONS (2)
  - NEUROPATHY PERIPHERAL [None]
  - VASCULITIS [None]
